FAERS Safety Report 19865316 (Version 2)
Quarter: 2021Q4

REPORT INFORMATION
  Report Type: Spontaneous
  Country: US (occurrence: US)
  Receive Date: 20210921
  Receipt Date: 20211019
  Transmission Date: 20220303
  Serious: Yes (Death)
  Sender: FDA-Public Use
  Company Number: US-BAUSCH-BL-2021-031835

PATIENT
  Age: 66 Year
  Sex: Female

DRUGS (5)
  1. HYDROCORTISONE [Suspect]
     Active Substance: HYDROCORTISONE
     Indication: Adrenal insufficiency
     Route: 065
  2. CEFEPIME [Concomitant]
     Active Substance: CEFEPIME HYDROCHLORIDE
     Indication: Preoperative care
  3. VANCOMYCIN [Concomitant]
     Active Substance: VANCOMYCIN
     Indication: Preoperative care
  4. BACITRACIN [Concomitant]
     Active Substance: BACITRACIN
     Indication: Preoperative care
  5. SILVER SULFADIAZINE [Concomitant]
     Active Substance: SILVER SULFADIAZINE
     Indication: Product used for unknown indication

REACTIONS (3)
  - Meningoencephalitis bacterial [Fatal]
  - Pseudomonas infection [Fatal]
  - CNS ventriculitis [Fatal]
